FAERS Safety Report 16164783 (Version 1)
Quarter: 2019Q2

REPORT INFORMATION
  Report Type: Report from Study
  Country: US (occurrence: US)
  Receive Date: 20190405
  Receipt Date: 20190405
  Transmission Date: 20190711
  Serious: Yes (Other)
  Sender: FDA-Public Use
  Company Number: US-PFIZER INC-2019073786

PATIENT
  Age: 44 Year
  Sex: Female

DRUGS (2)
  1. IBRANCE [Suspect]
     Active Substance: PALBOCICLIB
     Dosage: 100 MG, 1X/DAY
     Route: 048
     Dates: start: 201903
  2. IBRANCE [Suspect]
     Active Substance: PALBOCICLIB
     Indication: BREAST CANCER
     Dosage: 125 MG, CYCLIC (21 DAYS ON MEDICATION DAILY, 7 DAYS OFF)
     Route: 048
     Dates: start: 20190128

REACTIONS (17)
  - Neuropathy peripheral [Not Recovered/Not Resolved]
  - Vomiting [Unknown]
  - Arthralgia [Unknown]
  - Diarrhoea [Unknown]
  - Condition aggravated [Not Recovered/Not Resolved]
  - Abdominal symptom [Recovering/Resolving]
  - Hypotension [Unknown]
  - Stomatitis [Unknown]
  - Hypoaesthesia [Not Recovered/Not Resolved]
  - Product dose omission [Unknown]
  - Epistaxis [Unknown]
  - Pyrexia [Unknown]
  - Laboratory test abnormal [Unknown]
  - Dizziness [Unknown]
  - Influenza [Unknown]
  - Fatigue [Unknown]
  - Food intolerance [Unknown]
